FAERS Safety Report 8060419-7 (Version None)
Quarter: 2012Q1

REPORT INFORMATION
  Report Type: 
  Country: None (occurrence: None)
  Receive Date: 20120120
  Receipt Date: 20120113
  Transmission Date: 20120608
  Serious: Yes (Other)
  Sender: FDA-Public Use
  Company Number: US-GLAXOSMITHKLINE-A0961419A

PATIENT
  Age: 12 Week
  Sex: Female

DRUGS (1)
  1. RANITIDINE [Suspect]
     Indication: ILL-DEFINED DISORDER
     Dosage: 7ML TWICE PER DAY
     Route: 048
     Dates: start: 20111005, end: 20111118

REACTIONS (7)
  - DRUG ADMINISTRATION ERROR [None]
  - HEPATIC FUNCTION ABNORMAL [None]
  - HEPATIC ENZYME INCREASED [None]
  - ALBUMIN GLOBULIN RATIO INCREASED [None]
  - PLATELET COUNT INCREASED [None]
  - DRUG PRESCRIBING ERROR [None]
  - ACCIDENTAL OVERDOSE [None]
